FAERS Safety Report 5500782-1 (Version None)
Quarter: 2007Q4

REPORT INFORMATION
  Report Type: 
  Country: None (occurrence: None)
  Receive Date: 20071029
  Receipt Date: 20071022
  Transmission Date: 20080405
  Serious: Yes (Life-Threatening, Hospitalization)
  Sender: FDA-Public Use
  Company Number: A0662272A

PATIENT
  Age: 84 Year
  Sex: Male
  Weight: 76.4 kg

DRUGS (10)
  1. AVANDIA [Suspect]
     Dosage: 4MG PER DAY
     Route: 048
     Dates: start: 20050627, end: 20060622
  2. DIABETA [Concomitant]
  3. ALTACE [Concomitant]
     Dosage: 10MG TWICE PER DAY
     Route: 048
  4. CRESTOR [Concomitant]
     Dosage: 20MG UNKNOWN
     Route: 065
  5. ASPIRIN [Concomitant]
     Dosage: 81MG UNKNOWN
     Route: 048
  6. METFORMIN HCL [Concomitant]
     Dosage: 1G TWICE PER DAY
     Route: 065
  7. ATIVAN [Concomitant]
     Dosage: 1MG AS REQUIRED
     Route: 065
  8. ELAVIL [Concomitant]
     Dosage: 30MG AT NIGHT
     Route: 065
  9. PLENDIL [Concomitant]
     Dosage: 5MG PER DAY
     Route: 065
  10. SLOW FE [Concomitant]
     Dosage: 3TAB PER DAY
     Route: 048

REACTIONS (5)
  - CARDIAC DISORDER [None]
  - CARDIAC FAILURE [None]
  - DYSPNOEA [None]
  - INFARCTION [None]
  - MALAISE [None]
